FAERS Safety Report 23638224 (Version 3)
Quarter: 2024Q2

REPORT INFORMATION
  Report Type: Spontaneous
  Country: JP (occurrence: JP)
  Receive Date: 20240315
  Receipt Date: 20240417
  Transmission Date: 20240715
  Serious: Yes (Life-Threatening, Hospitalization, Other)
  Sender: FDA-Public Use
  Company Number: JP-ONO-2024JP005505

PATIENT
  Age: 57 Year
  Sex: Female

DRUGS (2)
  1. YERVOY [Suspect]
     Active Substance: IPILIMUMAB
     Indication: Peritoneal mesothelioma malignant
     Dosage: UNK
     Route: 041
  2. OPDIVO [Suspect]
     Active Substance: NIVOLUMAB
     Indication: Peritoneal mesothelioma malignant
     Dosage: UNK
     Route: 041

REACTIONS (4)
  - Cytokine release syndrome [Recovering/Resolving]
  - Hypoglycaemia [Unknown]
  - Metabolic acidosis [Unknown]
  - Off label use [Unknown]
